FAERS Safety Report 13095177 (Version 1)
Quarter: 2017Q1

REPORT INFORMATION
  Report Type: Spontaneous
  Country: US (occurrence: US)
  Receive Date: 20170107
  Receipt Date: 20170107
  Transmission Date: 20170428
  Serious: No
  Sender: FDA-Public Use
  Company Number: US-TEVA-724687ACC

PATIENT
  Age: 54 Year
  Sex: Male

DRUGS (13)
  1. MAGNESIUM [Concomitant]
     Active Substance: MAGNESIUM
  2. OMEGA 3KRILL [Concomitant]
  3. FLONASE [Concomitant]
     Active Substance: FLUTICASONE PROPIONATE
  4. PREDNISONE. [Concomitant]
     Active Substance: PREDNISONE
  5. ZYRTEC [Concomitant]
     Active Substance: CETIRIZINE HYDROCHLORIDE
  6. COPAXONE [Suspect]
     Active Substance: GLATIRAMER ACETATE
     Indication: MULTIPLE SCLEROSIS
     Route: 058
     Dates: start: 20140502
  7. AMANTADINE [Concomitant]
     Active Substance: AMANTADINE
  8. TIZANIDINE. [Concomitant]
     Active Substance: TIZANIDINE
  9. VITAMIN D [Concomitant]
     Active Substance: CHOLECALCIFEROL
  10. BACLOFEN. [Concomitant]
     Active Substance: BACLOFEN
  11. LISINOPRIL. [Concomitant]
     Active Substance: LISINOPRIL
  12. MULTIVITAMIN [Concomitant]
     Active Substance: VITAMINS
  13. OXYBUTYNIN [Concomitant]
     Active Substance: OXYBUTYNIN

REACTIONS (3)
  - Hypokinesia [Unknown]
  - Injection site reaction [Unknown]
  - Fall [Unknown]

NARRATIVE: CASE EVENT DATE: 201609
